FAERS Safety Report 9942414 (Version 1)
Quarter: 2014Q1

REPORT INFORMATION
  Report Type: Spontaneous
  Country: US (occurrence: US)
  Receive Date: 20140303
  Receipt Date: 20140303
  Transmission Date: 20141002
  Serious: No
  Sender: FDA-Public Use
  Company Number: US-PFIZER INC-2014060240

PATIENT
  Age: 28 Year
  Sex: Female
  Weight: 65.8 kg

DRUGS (3)
  1. GEODON [Suspect]
     Dosage: 40 MG, DAILY
     Dates: start: 201306
  2. ABILIFY [Concomitant]
     Dosage: UNK
     Dates: start: 20140225
  3. LAMICTAL [Concomitant]
     Dosage: UNK

REACTIONS (9)
  - Drug withdrawal syndrome [Unknown]
  - Gastrooesophageal reflux disease [Unknown]
  - Bone pain [Unknown]
  - Nervous system disorder [Unknown]
  - Thinking abnormal [Unknown]
  - Feeling hot [Unknown]
  - Chills [Unknown]
  - Heart rate increased [Unknown]
  - Headache [Unknown]
